FAERS Safety Report 11531314 (Version 1)
Quarter: 2015Q3

REPORT INFORMATION
  Report Type: Spontaneous
  Country: IT (occurrence: IT)
  Receive Date: 20150921
  Receipt Date: 20150921
  Transmission Date: 20151125
  Serious: Yes (Life-Threatening)
  Sender: FDA-Public Use
  Company Number: IT-JNJFOC-20150913455

PATIENT
  Age: 81 Year
  Sex: Male

DRUGS (11)
  1. XARELTO [Suspect]
     Active Substance: RIVAROXABAN
     Indication: CEREBROVASCULAR ACCIDENT PROPHYLAXIS
     Route: 048
     Dates: start: 20150827, end: 20150828
  2. LYRICA [Concomitant]
     Active Substance: PREGABALIN
     Route: 048
  3. STILNOX [Concomitant]
     Active Substance: ZOLPIDEM TARTRATE
     Route: 048
  4. METFORAL [Concomitant]
     Active Substance: METFORMIN HYDROCHLORIDE
     Route: 048
  5. BISOPROLOL FUMARATE. [Concomitant]
     Active Substance: BISOPROLOL FUMARATE
     Route: 048
  6. OMNIC [Concomitant]
     Active Substance: TAMSULOSIN HYDROCHLORIDE
     Route: 048
  7. PEPTAZOL [Concomitant]
     Active Substance: PANTOPRAZOLE SODIUM
     Route: 048
  8. ASACOL [Concomitant]
     Active Substance: MESALAMINE
     Route: 048
  9. AVODART [Concomitant]
     Active Substance: DUTASTERIDE
     Route: 048
  10. XARELTO [Suspect]
     Active Substance: RIVAROXABAN
     Indication: ATRIAL FIBRILLATION
     Route: 048
     Dates: start: 20150827, end: 20150828
  11. CLEXANE [Concomitant]
     Active Substance: ENOXAPARIN SODIUM
     Route: 058

REACTIONS (4)
  - Dysarthria [Unknown]
  - Headache [Unknown]
  - Subdural haematoma [Unknown]
  - VIIth nerve paralysis [Unknown]

NARRATIVE: CASE EVENT DATE: 20150828
